FAERS Safety Report 13928798 (Version 1)
Quarter: 2017Q3

REPORT INFORMATION
  Report Type: Spontaneous
  Country: TR (occurrence: TR)
  Receive Date: 20170901
  Receipt Date: 20170901
  Transmission Date: 20171127
  Serious: Yes (Other)
  Sender: FDA-Public Use
  Company Number: TR-SUN PHARMACEUTICAL INDUSTRIES LTD-2017R1-148792

PATIENT
  Age: 28 Year
  Sex: Female

DRUGS (1)
  1. BUPROPION. [Suspect]
     Active Substance: BUPROPION
     Indication: MAJOR DEPRESSION
     Dosage: UNK
     Route: 065

REACTIONS (3)
  - Intentional overdose [Recovered/Resolved]
  - Supraventricular tachycardia [Recovered/Resolved]
  - Suicide attempt [Unknown]
